FAERS Safety Report 8494121-4 (Version None)
Quarter: 2012Q3

REPORT INFORMATION
  Report Type: 
  Country: None (occurrence: None)
  Receive Date: 20120702
  Receipt Date: 20120702
  Transmission Date: 20120928
  Serious: Yes (Hospitalization, Disabling, Other)
  Sender: FDA-Public Use
  Company Number: None

PATIENT

DRUGS (1)
  1. DEPAKOTE [Suspect]
     Indication: ANXIETY
     Dosage: EVERY DAY
     Dates: start: 20070701, end: 20071201

REACTIONS (3)
  - CARDIAC FLUTTER [None]
  - ATRIAL FIBRILLATION [None]
  - ANXIETY [None]
